FAERS Safety Report 8531251-2 (Version None)
Quarter: 2012Q3

REPORT INFORMATION
  Report Type: 
  Country: None (occurrence: None)
  Receive Date: 20120723
  Receipt Date: 20120710
  Transmission Date: 20120928
  Serious: No
  Sender: FDA-Public Use
  Company Number: US-B.I. PHARMACEUTICALS,INC./RIDGEFIELD-2012-BP-12594BP

PATIENT
  Sex: Female
  Weight: 71.67 kg

DRUGS (12)
  1. VITAMIN B COMPLEX CAP [Concomitant]
     Indication: SUPPLEMENTATION THERAPY
     Dates: start: 20100101
  2. FUROSEMIDE [Concomitant]
     Indication: OEDEMA PERIPHERAL
     Dosage: 20 MG
     Route: 048
     Dates: start: 20100101
  3. PHENELZINE SULFATE [Concomitant]
     Indication: DEPRESSION
     Dosage: 45 MG
     Route: 048
     Dates: start: 20080101
  4. POTASSIUM CHLORIDE [Concomitant]
     Indication: BLOOD POTASSIUM DECREASED
     Dosage: 10 MEQ
     Route: 048
     Dates: start: 20100301
  5. SINGULAIR [Concomitant]
     Indication: CHRONIC OBSTRUCTIVE PULMONARY DISEASE
     Dosage: 10 MG
     Route: 048
     Dates: start: 20100101
  6. ZOLPIDEM [Concomitant]
     Indication: INSOMNIA
     Dosage: 10 MG
     Route: 048
     Dates: start: 20020101
  7. LORAZEPAM [Concomitant]
     Indication: INSOMNIA
     Dosage: 0.5 MG
     Route: 048
     Dates: start: 20020101
  8. VITAMIN D WITH CALCIUM [Concomitant]
     Indication: SUPPLEMENTATION THERAPY
     Dates: start: 20100101
  9. THEOPHYLLINE [Concomitant]
     Indication: CHRONIC OBSTRUCTIVE PULMONARY DISEASE
     Dosage: 200 MG
     Route: 048
     Dates: start: 20100101
  10. SUPPLEMENTAL OXYGEN [Concomitant]
     Indication: CHRONIC OBSTRUCTIVE PULMONARY DISEASE
     Route: 055
     Dates: start: 20110101
  11. SPIRIVA [Suspect]
     Indication: CHRONIC OBSTRUCTIVE PULMONARY DISEASE
     Dosage: 18 MCG
     Route: 055
     Dates: start: 20110131, end: 20120527
  12. ASPIRIN [Concomitant]
     Dosage: 81 MG
     Route: 048
     Dates: start: 20100101

REACTIONS (4)
  - NEUROPATHY PERIPHERAL [None]
  - PHARYNGEAL OEDEMA [None]
  - URINARY RETENTION [None]
  - SWOLLEN TONGUE [None]
